FAERS Safety Report 6793221-4 (Version None)
Quarter: 2010Q2

REPORT INFORMATION
  Report Type: 
  Country: None (occurrence: None)
  Receive Date: 20100624
  Receipt Date: 20091020
  Transmission Date: 20101027
  Serious: Yes (Other)
  Sender: FDA-Public Use
  Company Number: US-MYLANLABS-2009S1014815

PATIENT
  Age: 74 Year
  Sex: Female
  Weight: 84.37 kg

DRUGS (18)
  1. CLOZAPINE [Suspect]
     Indication: PSYCHOTIC DISORDER
     Route: 048
     Dates: start: 20080409, end: 20090821
  2. CLOZAPINE [Suspect]
     Indication: SCHIZOPHRENIA
     Route: 048
     Dates: start: 20080409, end: 20090821
  3. CLOZAPINE [Suspect]
     Route: 048
     Dates: start: 20080409, end: 20090821
  4. CLOZAPINE [Suspect]
     Route: 048
     Dates: start: 20080409, end: 20090821
  5. AMLODIPINE [Concomitant]
     Route: 048
  6. ARICEPT [Concomitant]
     Route: 048
  7. CATAPRES-TTS-1 [Concomitant]
     Route: 062
  8. GENFIBROZILA [Concomitant]
     Route: 048
  9. HALOPERIDOL [Concomitant]
     Indication: AGITATION
     Route: 030
  10. HALOPERIDOL [Concomitant]
     Dosage: 0.5MG PRN
     Route: 048
  11. LEVOTHYROXINE SODIUM [Concomitant]
     Route: 048
  12. LORAZEPAM [Concomitant]
     Route: 048
  13. OMEPRAZOLE [Concomitant]
     Route: 048
  14. SEROQUEL [Concomitant]
     Route: 048
  15. TRAZODONE HYDROCHLORIDE [Concomitant]
     Route: 048
  16. VENLAFAXINE [Concomitant]
     Route: 048
  17. XALATAN [Concomitant]
     Dosage: GTT OU
     Route: 047
  18. BENZTROPINE MESYLATE [Concomitant]
     Route: 048

REACTIONS (2)
  - GRANULOCYTOPENIA [None]
  - WHITE BLOOD CELL COUNT DECREASED [None]
